FAERS Safety Report 8315626-2 (Version None)
Quarter: 2012Q2

REPORT INFORMATION
  Report Type: 
  Country: None (occurrence: None)
  Receive Date: 20120426
  Receipt Date: 20120321
  Transmission Date: 20120825
  Serious: Yes (Hospitalization)
  Sender: FDA-Public Use
  Company Number: NL-MEDIMMUNE-MEDI-0014871

PATIENT
  Sex: Female
  Weight: 5.5 kg

DRUGS (2)
  1. SYNAGIS [Suspect]
     Route: 030
     Dates: start: 20120204, end: 20120410
  2. SYNAGIS [Suspect]
     Indication: PREMATURE BABY
     Route: 030
     Dates: start: 20111212, end: 20120107

REACTIONS (3)
  - GASTROENTERITIS [None]
  - DYSPNOEA [None]
  - PYREXIA [None]
